FAERS Safety Report 5774684-X (Version None)
Quarter: 2008Q2

REPORT INFORMATION
  Report Type: 
  Country: None (occurrence: None)
  Receive Date: 20080616
  Receipt Date: 20080616
  Transmission Date: 20081010
  Serious: No
  Sender: FDA-Public Use
  Company Number: None

PATIENT
  Sex: Male

DRUGS (1)
  1. PEXEVA [Suspect]
     Indication: PANIC DISORDER
     Dosage: 1 PO QD #30
     Route: 048
     Dates: start: 20080530

REACTIONS (3)
  - AGITATION [None]
  - ANXIETY [None]
  - PANIC ATTACK [None]
